FAERS Safety Report 14225793 (Version 1)
Quarter: 2017Q4

REPORT INFORMATION
  Report Type: Spontaneous
  Country: US (occurrence: None)
  Receive Date: 20171124
  Receipt Date: 20171124
  Transmission Date: 20180321
  Serious: No
  Sender: FDA-Public Use
  Company Number: None

PATIENT
  Age: 71 Year
  Sex: Female

DRUGS (1)
  1. TASIGNA [Suspect]
     Active Substance: NILOTINIB
     Indication: CHRONIC MYELOID LEUKAEMIA
     Route: 048
     Dates: start: 20170919

REACTIONS (6)
  - Back pain [None]
  - Headache [None]
  - Nerve compression [None]
  - Pain [None]
  - Drug ineffective [None]
  - Vision blurred [None]

NARRATIVE: CASE EVENT DATE: 20171010
